FAERS Safety Report 9494137 (Version 1)
Quarter: 2013Q3

REPORT INFORMATION
  Report Type: Report from Study
  Country: US (occurrence: US)
  Receive Date: 20130903
  Receipt Date: 20130903
  Transmission Date: 20140515
  Serious: Yes (Other)
  Sender: FDA-Public Use
  Company Number: PHEH2013US018455

PATIENT
  Sex: Male
  Weight: 69.39 kg

DRUGS (8)
  1. ZOMETA [Suspect]
     Indication: PLASMA CELL MYELOMA
     Dosage: UNK UKN, UNK
     Route: 041
     Dates: start: 2006
  2. THALOMID [Suspect]
     Dosage: UNK UKN, UNK
  3. REVLIMID [Concomitant]
     Dosage: UNK UKN, UNK
  4. LOVENOX [Concomitant]
     Dosage: UNK UKN, UNK
  5. ACYCLOVIR [Concomitant]
     Dosage: UNK UKN, UNK
  6. DEXAMETHASONE [Concomitant]
     Dosage: UNK UKN, UNK
  7. MULTIVIT//VITAMINS NOS [Concomitant]
     Dosage: UNK UKN, UNK
  8. CALCIUM + VITAMIN D [Concomitant]
     Dosage: UNK UKN, UNK

REACTIONS (1)
  - Pulmonary embolism [Unknown]
